FAERS Safety Report 13452869 (Version 2)
Quarter: 2017Q3

REPORT INFORMATION
  Report Type: Report from Study
  Country: JP (occurrence: JP)
  Receive Date: 20170418
  Receipt Date: 20170719
  Transmission Date: 20171127
  Serious: Yes (Other)
  Sender: FDA-Public Use
  Company Number: JP-MYLANLABS-2017M1023227

PATIENT

DRUGS (4)
  1. CARBOPLATIN MYLAN [Suspect]
     Active Substance: CARBOPLATIN
     Dosage: AUC=5.0, IN 30 MINUTES EVERY 3??4 WEEKS
     Route: 041
  2. PACLITAXEL. [Suspect]
     Active Substance: PACLITAXEL
     Indication: CERVIX CARCINOMA
     Dosage: 35 MG/M2 AS A 60-MINUTE CONTINUOUS INFUSION
     Route: 050
  3. PACLITAXEL. [Suspect]
     Active Substance: PACLITAXEL
     Dosage: 175 MG/M2 IN 3 HOURS EVERY 3??4 WEEKS
     Route: 065
  4. CARBOPLATIN MYLAN [Suspect]
     Active Substance: CARBOPLATIN
     Indication: CERVIX CARCINOMA
     Dosage: AUC=2 AS A 30MINUTE INFUSION
     Route: 041

REACTIONS (1)
  - Urogenital fistula [Unknown]
